FAERS Safety Report 16949215 (Version 5)
Quarter: 2020Q4

REPORT INFORMATION
  Report Type: Report from Study
  Country: US (occurrence: US)
  Receive Date: 20191023
  Receipt Date: 20201005
  Transmission Date: 20210113
  Serious: Yes (Hospitalization, Other)
  Sender: FDA-Public Use
  Company Number: US-EMD SERONO-9123662

PATIENT
  Age: 61 Year
  Sex: Male

DRUGS (1)
  1. REBIF [Suspect]
     Active Substance: INTERFERON BETA-1A
     Indication: MULTIPLE SCLEROSIS
     Route: 058
     Dates: start: 20170804

REACTIONS (15)
  - Cortisol increased [Recovered/Resolved]
  - Dyspnoea [Recovered/Resolved]
  - Panic attack [Recovered/Resolved]
  - Asthenia [Unknown]
  - Dysstasia [Recovering/Resolving]
  - Blood potassium increased [Unknown]
  - Radial nerve palsy [Recovering/Resolving]
  - Blood glucose abnormal [Recovered/Resolved]
  - Hypokinesia [Unknown]
  - Thrombosis [Recovered/Resolved]
  - Multiple sclerosis relapse [Unknown]
  - Fluid retention [Unknown]
  - Product dose omission issue [Unknown]
  - Generalised oedema [Unknown]
  - Peripheral swelling [Unknown]

NARRATIVE: CASE EVENT DATE: 2018
